APPROVED DRUG PRODUCT: LOCOID
Active Ingredient: HYDROCORTISONE BUTYRATE
Strength: 0.1%
Dosage Form/Route: OINTMENT;TOPICAL
Application: N019106 | Product #001
Applicant: YAMANOUCHI EUROPE BV
Approved: Jul 3, 1984 | RLD: No | RS: No | Type: DISCN